FAERS Safety Report 18087877 (Version 1)
Quarter: 2020Q3

REPORT INFORMATION
  Report Type: Report from Study
  Country: US (occurrence: US)
  Receive Date: 20200729
  Receipt Date: 20200729
  Transmission Date: 20201103
  Serious: Yes (Hospitalization)
  Sender: FDA-Public Use
  Company Number: US-MYLANLABS-2020M1067926

PATIENT
  Age: 12 Year
  Sex: Male

DRUGS (6)
  1. PEG/L?ASPARAGINASE [Suspect]
     Active Substance: PEGASPARGASE
     Dosage: RECEIVED CONTINUATION PHASE THERAPY..
     Route: 065
  2. DEXAMETHASONE. [Suspect]
     Active Substance: DEXAMETHASONE
     Indication: NON-HODGKIN^S LYMPHOMA
     Dosage: 1020 MG/M2RECEIVED CONTINUATION PHASE THERAPY WITH A CUMULATIVE..
     Route: 065
  3. PREDNISONE. [Suspect]
     Active Substance: PREDNISONE
     Indication: NON-HODGKIN^S LYMPHOMA
     Dosage: 1120MG/M2DURING REMISSION INDUCTION, RECEIVED A CUMULATIVE DOSE..
     Route: 065
  4. PEG/L?ASPARAGINASE [Suspect]
     Active Substance: PEGASPARGASE
     Dosage: RECEIVED CONSOLIDATION PHASE TREATMENT ..
     Route: 065
  5. PEG/L?ASPARAGINASE [Suspect]
     Active Substance: PEGASPARGASE
     Indication: NON-HODGKIN^S LYMPHOMA
     Dosage: DURING REMISSION INDUCTION, RECEIVED AT 2500..
     Route: 065
  6. METHOTREXATE. [Concomitant]
     Active Substance: METHOTREXATE
     Indication: NON-HODGKIN^S LYMPHOMA
     Dosage: HIGH?DOSE; RECEIVED 4 DOSES DURING CONSOLIDATION PHASE THERAPY
     Route: 065

REACTIONS (1)
  - Osteonecrosis [Recovering/Resolving]
